FAERS Safety Report 14639028 (Version 1)
Quarter: 2018Q1

REPORT INFORMATION
  Report Type: Spontaneous
  Country: FR (occurrence: FR)
  Receive Date: 20180315
  Receipt Date: 20180315
  Transmission Date: 20180509
  Serious: Yes (Other)
  Sender: FDA-Public Use
  Company Number: FR-MERCK KGAA-2043761

PATIENT
  Age: 66 Year
  Sex: Male

DRUGS (1)
  1. NOVOTHYROX [Suspect]
     Active Substance: LEVOTHYROXINE SODIUM
     Indication: PRODUCT USED FOR UNKNOWN INDICATION

REACTIONS (26)
  - Family stress [None]
  - Fear [None]
  - Fall [None]
  - Diarrhoea [None]
  - Housebound [None]
  - Irritability [None]
  - Vertigo [None]
  - Affective disorder [None]
  - Gastrointestinal motility disorder [None]
  - Loss of personal independence in daily activities [None]
  - Social avoidant behaviour [None]
  - Nightmare [None]
  - Headache [None]
  - Hot flush [None]
  - Memory impairment [None]
  - Balance disorder [None]
  - Sleep disorder [None]
  - Insomnia [None]
  - Fatigue [None]
  - Dry mouth [None]
  - Hyperthyroidism [None]
  - Myalgia [None]
  - Arthralgia [None]
  - Asthenia [None]
  - Libido decreased [None]
  - Visual impairment [None]
